FAERS Safety Report 8506253-2 (Version None)
Quarter: 2012Q3

REPORT INFORMATION
  Report Type: 
  Country: None (occurrence: None)
  Receive Date: 20120712
  Receipt Date: 20120705
  Transmission Date: 20120928
  Serious: Yes (Hospitalization, Other)
  Sender: FDA-Public Use
  Company Number: US-UCBSA-8054538

PATIENT
  Sex: Female
  Weight: 46 kg

DRUGS (15)
  1. MULTI-VITAMIN [Concomitant]
     Indication: SUPPLEMENTATION THERAPY
     Dosage: 1 PO DAILY
     Route: 048
     Dates: start: 20020101
  2. COUMADIN [Concomitant]
     Indication: PULMONARY EMBOLISM
     Dosage: VARIABLE DOSE
     Route: 048
     Dates: start: 20090101
  3. CALCIUM CITRATE/VITD3 [Concomitant]
     Dosage: 250-200 MG
     Dates: start: 20091210
  4. AZATHIOPRINE [Concomitant]
     Indication: CROHN'S DISEASE
     Dates: start: 20090128, end: 20090319
  5. CALCIUM CITRATE/VITD3 [Concomitant]
     Indication: OSTEOPOROSIS
     Dosage: 200-500 MG UNIT
     Route: 048
     Dates: start: 20060101
  6. AZATHIOPRINE [Concomitant]
     Dates: start: 20090421, end: 20090921
  7. CIMZIA [Suspect]
     Indication: CROHN'S DISEASE
     Route: 058
     Dates: start: 20090831, end: 20090101
  8. CALCIUM PLUS D [Concomitant]
  9. COUMADIN [Concomitant]
     Indication: PROPHYLAXIS
     Dosage: VARIABLE DOSE
     Route: 048
     Dates: start: 20090101
  10. VASOTEC [Concomitant]
     Dosage: 2.5 MG
     Route: 048
  11. PREDNISONE [Concomitant]
     Indication: CROHN'S DISEASE
     Dosage: 20MG PO DAILY
     Route: 048
     Dates: start: 20090105, end: 20090101
  12. PREDNISONE [Concomitant]
     Dosage: 20MG PO DAILY TAPERING SCHEDULE
     Route: 048
     Dates: start: 20091027, end: 20091114
  13. ACETAMINOPHEN [Concomitant]
     Indication: PAIN
     Dosage: 1-2 AS NEEDED 1000 MG
     Route: 048
  14. COUMADIN [Concomitant]
     Indication: DEEP VEIN THROMBOSIS
     Dosage: VARIABLE DOSE
     Route: 048
     Dates: start: 20090101
  15. CALCIUM/VITD1 [Concomitant]
     Route: 048
     Dates: start: 20060101

REACTIONS (6)
  - DEEP VEIN THROMBOSIS [None]
  - ABDOMINAL ABSCESS [None]
  - PULMONARY EMBOLISM [None]
  - LARGE INTESTINE PERFORATION [None]
  - CARDIOMYOPATHY [None]
  - PELVIC ABSCESS [None]
